FAERS Safety Report 11702257 (Version 4)
Quarter: 2016Q1

REPORT INFORMATION
  Report Type: Spontaneous
  Country: US (occurrence: US)
  Receive Date: 20151105
  Receipt Date: 20160125
  Transmission Date: 20160525
  Serious: Yes (Other)
  Sender: FDA-Public Use
  Company Number: US-TORRENT-00001022

PATIENT
  Age: 54 Year
  Sex: Female
  Weight: 68 kg

DRUGS (5)
  1. GLIPIZIDE. [Concomitant]
     Active Substance: GLIPIZIDE
     Indication: DIABETES MELLITUS
     Dates: start: 2011
  2. PIOGLITAZONE HYDROCHLORIDE TABLET [Suspect]
     Active Substance: PIOGLITAZONE HYDROCHLORIDE
     Indication: PRODUCT USED FOR UNKNOWN INDICATION
     Dates: start: 2012, end: 2014
  3. ASPIRIN. [Concomitant]
     Active Substance: ASPIRIN
     Dates: start: 2011, end: 2015
  4. LISINOPRIL. [Concomitant]
     Active Substance: LISINOPRIL
     Dates: start: 2012, end: 2015
  5. METFORMIN [Concomitant]
     Active Substance: METFORMIN HYDROCHLORIDE
     Indication: DIABETES MELLITUS
     Dosage: 600 MG DAILY
     Route: 048
     Dates: start: 2004

REACTIONS (2)
  - Bladder cancer [Unknown]
  - Urinary tract infection fungal [Not Recovered/Not Resolved]

NARRATIVE: CASE EVENT DATE: 2012
